FAERS Safety Report 18958850 (Version 1)
Quarter: 2021Q1

REPORT INFORMATION
  Report Type: Spontaneous
  Country: US (occurrence: US)
  Receive Date: 20210302
  Receipt Date: 20210302
  Transmission Date: 20210420
  Serious: Yes (Hospitalization, Other)
  Sender: FDA-Public Use
  Company Number: US-LUPIN PHARMACEUTICALS INC.-2021-02482

PATIENT
  Age: 20 Year
  Sex: Male

DRUGS (2)
  1. BUPROPION. [Suspect]
     Active Substance: BUPROPION
     Indication: DEPRESSION
     Dosage: UNK
     Route: 065
  2. PAROXETINE. [Concomitant]
     Active Substance: PAROXETINE
     Indication: DEPRESSION
     Dosage: UNK
     Route: 065

REACTIONS (5)
  - Reversible cerebral vasoconstriction syndrome [Recovering/Resolving]
  - Cerebral infarction [Recovering/Resolving]
  - Basilar artery occlusion [Recovering/Resolving]
  - Cerebellar infarction [Recovering/Resolving]
  - Thalamic infarction [Recovering/Resolving]
